FAERS Safety Report 6601162-8 (Version None)
Quarter: 2010Q1

REPORT INFORMATION
  Report Type: 
  Country: None (occurrence: None)
  Receive Date: 20100217
  Receipt Date: 20100125
  Transmission Date: 20100710
  Serious: Yes (Disabling)
  Sender: FDA-Public Use
  Company Number: 1000011619

PATIENT
  Age: 44 Year
  Sex: Female

DRUGS (2)
  1. ESCITALOPRAM [Suspect]
     Indication: BIPOLAR DISORDER
     Dosage: 10-30 MG (1 IN 1 D) ,ORAL
     Route: 048
     Dates: start: 20050401, end: 20080101
  2. LITHIONIT [Concomitant]

REACTIONS (12)
  - AGGRESSION [None]
  - APHASIA [None]
  - DIARRHOEA [None]
  - HYPERACUSIS [None]
  - LIBIDO INCREASED [None]
  - NAUSEA [None]
  - OVERDOSE [None]
  - PHOTOPHOBIA [None]
  - SELF-INJURIOUS IDEATION [None]
  - SUICIDAL IDEATION [None]
  - TINNITUS [None]
  - VISUAL IMPAIRMENT [None]
